FAERS Safety Report 25882902 (Version 1)
Quarter: 2025Q4

REPORT INFORMATION
  Report Type: Spontaneous
  Country: US (occurrence: US)
  Receive Date: 20251006
  Receipt Date: 20251006
  Transmission Date: 20260117
  Serious: Yes (Hospitalization)
  Sender: Kenvue
  Company Number: US-KENVUE-20250914777

PATIENT

DRUGS (1)
  1. TYLENOL PM [Suspect]
     Active Substance: ACETAMINOPHEN\DIPHENHYDRAMINE
     Indication: Sleep disorder
     Dosage: TAKING NIGHTTIME TYLENOL
     Route: 065

REACTIONS (2)
  - Toxicity to various agents [Unknown]
  - Product use in unapproved indication [Unknown]
